FAERS Safety Report 4681383-4 (Version None)
Quarter: 2005Q2

REPORT INFORMATION
  Report Type: 
  Country: None (occurrence: None)
  Receive Date: 20050603
  Receipt Date: 20050406
  Transmission Date: 20051028
  Serious: Yes (Other)
  Sender: FDA-Public Use
  Company Number: 2005CG00703

PATIENT
  Age: 55 Year
  Sex: Female
  Weight: 52 kg

DRUGS (2)
  1. ARIMIDEX [Suspect]
     Indication: BREAST CANCER FEMALE
     Route: 048
     Dates: start: 20050101, end: 20050419
  2. NOLVADEX [Suspect]
     Indication: BREAST CANCER FEMALE
     Route: 048
     Dates: start: 20010101, end: 20040101

REACTIONS (3)
  - ARTHRALGIA [None]
  - HOT FLUSH [None]
  - METRORRHAGIA [None]
